FAERS Safety Report 25356152 (Version 2)
Quarter: 2025Q3

REPORT INFORMATION
  Report Type: Spontaneous
  Country: EU (occurrence: EU)
  Receive Date: 20250525
  Receipt Date: 20250711
  Transmission Date: 20251021
  Serious: Yes (Life-Threatening, Hospitalization)
  Sender: ASTELLAS
  Company Number: EU-ASTELLAS-2025-AER-028245

PATIENT
  Sex: Female

DRUGS (1)
  1. VYLOY [Suspect]
     Active Substance: ZOLBETUXIMAB-CLZB
     Indication: Product used for unknown indication
     Route: 050

REACTIONS (3)
  - Endocarditis [Recovered/Resolved with Sequelae]
  - Oedema [Unknown]
  - Pleural effusion [Unknown]
